FAERS Safety Report 4898436-8 (Version None)
Quarter: 2006Q1

REPORT INFORMATION
  Report Type: 
  Country: None (occurrence: None)
  Receive Date: 20060130
  Receipt Date: 20060116
  Transmission Date: 20060701
  Serious: Yes (Other)
  Sender: FDA-Public Use
  Company Number: 2006009437

PATIENT
  Age: 63 Year
  Sex: Female
  Weight: 89 kg

DRUGS (18)
  1. LYRICA [Suspect]
     Indication: DIABETIC NEUROPATHY
     Dosage: 75 MG (75 MG, 1 IN 1 D), ORAL
     Route: 048
     Dates: start: 20050907, end: 20051223
  2. LYRICA [Suspect]
     Indication: POLYNEUROPATHY
     Dosage: 75 MG (75 MG, 1 IN 1 D), ORAL
     Route: 048
     Dates: start: 20050907, end: 20051223
  3. LYRICA [Suspect]
     Indication: URAEMIC NEUROPATHY
     Dosage: 75 MG (75 MG, 1 IN 1 D), ORAL
     Route: 048
     Dates: start: 20050907, end: 20051223
  4. OMEPRAZOLE [Concomitant]
  5. EZETROL (EZETIMIBE) [Concomitant]
  6. TOREM (RORASEMIDE) [Concomitant]
  7. SANDIMMUNE [Concomitant]
  8. BISOPROLOL FUMARATE [Concomitant]
  9. DIGITOXIN TAB [Concomitant]
  10. IMODIUM [Concomitant]
  11. RAMIPRIL [Concomitant]
  12. ARANESP [Concomitant]
  13. SALICYL ALCOHOL (SALICYL ALCOHOL) [Concomitant]
  14. LEVOCARNITINE (LEVOCARNITINE) [Concomitant]
  15. CALCITRIOL [Concomitant]
  16. ACTRAPID (INSULIN) [Concomitant]
  17. LANTUS [Concomitant]
  18. LOCOL (FLUVASTATIN SODIUM) [Concomitant]

REACTIONS (1)
  - DIPLEGIA [None]
